FAERS Safety Report 4330501-6 (Version None)
Quarter: 2004Q1

REPORT INFORMATION
  Report Type: 
  Country: None (occurrence: None)
  Receive Date: 20040329
  Receipt Date: 20040317
  Transmission Date: 20041129
  Serious: Yes (Hospitalization)
  Sender: FDA-Public Use
  Company Number: CIP04000589

PATIENT
  Age: 76 Year
  Sex: Female

DRUGS (6)
  1. BENET (RISEDRONATE SODIUM) TABLET, 2.5MG [Suspect]
     Indication: OSTEOPOROSIS
     Dosage: 2.5 MG DAILY, ORAL
     Route: 048
     Dates: start: 20040209, end: 20040302
  2. ESIDRI (HYDRALAZINE HYDROCHLORIDE) [Concomitant]
  3. LEVOTHYROXINE SODIUM [Concomitant]
  4. CAMOSTAT MESILATE (CAMOSTAT MESILATE) [Concomitant]
  5. TRANCOLON (MEPENZOLATE BROMIDE) [Concomitant]
  6. FLAVOXATE [Concomitant]

REACTIONS (2)
  - HEPATIC FUNCTION ABNORMAL [None]
  - HEPATITIS ACUTE [None]
